FAERS Safety Report 18001492 (Version 2)
Quarter: 2020Q3

REPORT INFORMATION
  Report Type: Report from Study
  Country: None (occurrence: AR)
  Receive Date: 20200709
  Receipt Date: 20200914
  Transmission Date: 20201103
  Serious: Yes (Hospitalization, Other)
  Sender: FDA-Public Use
  Company Number: AR-ABBVIE-18K-007-2347771-00

PATIENT
  Sex: Female

DRUGS (1)
  1. HUMIRA [Suspect]
     Active Substance: ADALIMUMAB
     Indication: RHEUMATOID ARTHRITIS
     Route: 058
     Dates: start: 20170821

REACTIONS (9)
  - Systemic lupus erythematosus [Unknown]
  - Weight decreased [Recovering/Resolving]
  - Immunodeficiency [Not Recovered/Not Resolved]
  - Rash [Unknown]
  - Rheumatoid arthritis [Recovering/Resolving]
  - Pulmonary oedema [Not Recovered/Not Resolved]
  - Mobility decreased [Unknown]
  - Oedema peripheral [Not Recovered/Not Resolved]
  - Fibromyalgia [Not Recovered/Not Resolved]

NARRATIVE: CASE EVENT DATE: 2017
